FAERS Safety Report 18087623 (Version 3)
Quarter: 2020Q3

REPORT INFORMATION
  Report Type: Report from Study
  Country: KR (occurrence: KR)
  Receive Date: 20200729
  Receipt Date: 20200930
  Transmission Date: 20201103
  Serious: No
  Sender: FDA-Public Use
  Company Number: KR-CELGENEUS-KOR-20200706225

PATIENT
  Age: 64 Year
  Sex: Female
  Weight: 44 kg

DRUGS (22)
  1. ALLOPURINOL 100MG [Concomitant]
     Active Substance: ALLOPURINOL
     Indication: GOUT
     Dosage: 1 TABLET X ONCE
     Route: 048
     Dates: start: 20200607, end: 20200620
  2. CELECOXIB 200MG [Concomitant]
     Active Substance: CELECOXIB
     Indication: GOUT
     Dosage: 1 CAPSULE X ONCE
     Route: 048
     Dates: start: 20200607, end: 20200608
  3. MAGNESIUM SULFATE. [Concomitant]
     Active Substance: MAGNESIUM SULFATE
     Indication: PROPHYLAXIS
     Dosage: 2 G X ONCE
     Route: 042
     Dates: start: 20200604, end: 20200604
  4. FEDRATINIB [Suspect]
     Active Substance: FEDRATINIB
     Indication: MYELOFIBROSIS
     Dosage: 400 MG X 1 X 1 DAYS
     Route: 048
     Dates: start: 20200513, end: 20200530
  5. FEDRATINIB [Suspect]
     Active Substance: FEDRATINIB
     Dosage: 0 MG X 1 X 1 DAYS
     Route: 048
     Dates: start: 20200531, end: 20200605
  6. COLCHICINE. [Concomitant]
     Active Substance: COLCHICINE
     Indication: GOUT
     Dosage: 600 UG X 1 X 1 DAYS
     Route: 048
     Dates: start: 20200511
  7. ALLOPURINOL. [Concomitant]
     Active Substance: ALLOPURINOL
     Indication: GOUT
     Dosage: 100 MG X 1 X 1 DAYS
     Route: 048
     Dates: start: 20200511
  8. COLCHICINE 600MCG [Concomitant]
     Indication: GOUT
     Dosage: 1 TABLET X 2 X 1 DAYS
     Route: 048
     Dates: start: 20200607, end: 20200607
  9. NAK INJ 200(POTASSIUM CHLORIDE 1.5G, SODIUM CHLORIDE 0.9G) [Concomitant]
     Indication: PROPHYLAXIS
     Dosage: 100 ML X ONCE
     Route: 042
     Dates: start: 20200606, end: 20200606
  10. CALCIUM GLUCONATE. [Concomitant]
     Active Substance: CALCIUM GLUCONATE
     Indication: PROPHYLAXIS
     Dosage: 2 G X ONCE
     Route: 042
     Dates: start: 20200604, end: 20200604
  11. TEICOPLANIN [Concomitant]
     Active Substance: TEICOPLANIN
     Dosage: 400 MG X ONCE
     Route: 042
     Dates: start: 20200602, end: 20200604
  12. FEDRATINIB [Suspect]
     Active Substance: FEDRATINIB
     Dosage: 400 MG X 1 X 1 DAYS
     Route: 048
     Dates: start: 20200606, end: 20200630
  13. FEDRATINIB [Suspect]
     Active Substance: FEDRATINIB
     Dosage: 300 MG X 1 X 1 DAYS
     Route: 048
     Dates: start: 20200715
  14. CALCIUM CHLORIDE(3%) 600MG/20ML [Concomitant]
     Indication: PROPHYLAXIS
     Dosage: 600 MG X ONCE
     Route: 042
     Dates: start: 20200610, end: 20200610
  15. TEICOPLANIN [Concomitant]
     Active Substance: TEICOPLANIN
     Indication: INFECTION PROPHYLAXIS
     Dosage: 400 MG X ONCE
     Route: 042
     Dates: start: 20200602, end: 20200604
  16. FEDRATINIB [Suspect]
     Active Substance: FEDRATINIB
     Dosage: 0 MG X 1 X 1 DAYS
     Route: 048
     Dates: start: 20200701, end: 20200714
  17. CEFTRIAXONE SODIUM. [Concomitant]
     Active Substance: CEFTRIAXONE SODIUM
     Indication: INFECTION PROPHYLAXIS
     Dosage: 2 G X ONCE
     Route: 042
     Dates: start: 20200601, end: 20200604
  18. COLCHICINE 600MCG [Concomitant]
     Dosage: 1 TABLET X ONCE
     Route: 048
     Dates: start: 20200608, end: 20200620
  19. COMBIFLEX PERI INFU. BAG [Concomitant]
     Indication: NUTRITIONAL SUPPLEMENTATION
     Dosage: 1100 ML X ONCE
     Route: 042
     Dates: start: 20200531, end: 20200605
  20. ONSERAN [Concomitant]
     Indication: PROPHYLAXIS OF NAUSEA AND VOMITING
     Dosage: 8 MG X 2 X 1 DAYS
     Route: 048
     Dates: start: 20200513
  21. DEXLANSOPRAZOLE 30MG [Concomitant]
     Indication: GASTRITIS PROPHYLAXIS
     Dosage: 1 CAPSULE X ONCE
     Route: 048
     Dates: start: 20200611, end: 20200620
  22. TAMIPOOL INJ [Concomitant]
     Indication: VITAMIN SUPPLEMENTATION
     Dosage: 1 VIAL X ONCE
     Route: 042
     Dates: start: 20200531, end: 20200605

REACTIONS (1)
  - Vitamin B1 deficiency [Recovered/Resolved]

NARRATIVE: CASE EVENT DATE: 20200708
